FAERS Safety Report 9772420 (Version 1)
Quarter: 2013Q4

REPORT INFORMATION
  Report Type: Spontaneous
  Country: US (occurrence: None)
  Receive Date: 20131218
  Receipt Date: 20131218
  Transmission Date: 20140711
  Serious: Yes (Hospitalization)
  Sender: FDA-Public Use
  Company Number: None

PATIENT
  Age: 89 Year
  Sex: Female
  Weight: 84.9 kg

DRUGS (2)
  1. LEXAPRO [Suspect]
     Indication: DEMENTIA
     Dosage: 1 TABLET
     Route: 048
  2. LISINOPRIL [Suspect]
     Indication: HYPERTENSION
     Dosage: PAST 10 YEARS?1 TABLET BID ORAL
     Route: 048

REACTIONS (3)
  - Swollen tongue [None]
  - Dyspnoea [None]
  - Angioedema [None]
